FAERS Safety Report 16924439 (Version 1)
Quarter: 2019Q4

REPORT INFORMATION
  Report Type: Spontaneous
  Country: EE (occurrence: EE)
  Receive Date: 20191016
  Receipt Date: 20191016
  Transmission Date: 20200122
  Serious: Yes (Other)
  Sender: FDA-Public Use
  Company Number: EE-BAYER-2019-181984

PATIENT
  Age: 66 Year
  Sex: Male

DRUGS (1)
  1. XOFIGO [Suspect]
     Active Substance: RADIUM RA-223 DICHLORIDE
     Dosage: UNK
     Route: 042
     Dates: start: 20180909

REACTIONS (5)
  - Thrombocytopenia [None]
  - Haemoglobin decreased [None]
  - General physical health deterioration [None]
  - Prostatic specific antigen increased [None]
  - Blood alkaline phosphatase decreased [None]
